FAERS Safety Report 19257327 (Version 2)
Quarter: 2021Q2

REPORT INFORMATION
  Report Type: Spontaneous
  Country: US (occurrence: US)
  Receive Date: 20210514
  Receipt Date: 20210514
  Transmission Date: 20210717
  Serious: No
  Sender: FDA-Public Use
  Company Number: US-INFO-001223

PATIENT
  Age: 63 Year
  Sex: Female
  Weight: 76 kg

DRUGS (2)
  1. EXEMESTANE. [Concomitant]
     Active Substance: EXEMESTANE
     Indication: BREAST CANCER
     Route: 048
  2. ZOLEDRONIC ACID 4 MG [Suspect]
     Active Substance: ZOLEDRONIC ACID
     Indication: BONE LOSS
     Route: 065
     Dates: start: 20210408, end: 20210408

REACTIONS (9)
  - Gait inability [Unknown]
  - Loss of consciousness [Unknown]
  - Arthralgia [Unknown]
  - Off label use [Unknown]
  - Hyperhidrosis [Unknown]
  - Nausea [Unknown]
  - Back pain [Unknown]
  - Decubitus ulcer [Unknown]
  - Muscle spasms [Unknown]
